FAERS Safety Report 24365118 (Version 1)
Quarter: 2024Q3

REPORT INFORMATION
  Report Type: Spontaneous
  Country: PL (occurrence: PL)
  Receive Date: 20240926
  Receipt Date: 20240926
  Transmission Date: 20241016
  Serious: Yes (Other)
  Sender: SANDOZ
  Company Number: None

PATIENT
  Age: 76 Year
  Sex: Female

DRUGS (8)
  1. BISOPROLOL [Suspect]
     Active Substance: BISOPROLOL\BISOPROLOL FUMARATE
     Indication: Atrial fibrillation
     Dosage: 5 MG, QD
     Route: 065
  2. DABIGATRAN [Suspect]
     Active Substance: DABIGATRAN
     Indication: Atrial fibrillation
     Dosage: 150 MG, Q12H (2X PER DAY)
     Route: 065
  3. DICLOFENAC [Suspect]
     Active Substance: DICLOFENAC
     Indication: Osteoarthritis
     Dosage: 50 MG, QD (PLUS 1-2 TABLETS IN CASE OF PAIN, EVERY 1 DAYS)
     Route: 065
  4. DOXAZOSIN [Suspect]
     Active Substance: DOXAZOSIN MESYLATE
     Indication: Hypertension
     Dosage: 1 MG, QD
     Route: 065
  5. PIRACETAM [Suspect]
     Active Substance: PIRACETAM
     Indication: Cognitive disorder
     Dosage: 1200 MG, Q8H (3X PER DAY)
     Route: 065
  6. RAMIPRIL [Suspect]
     Active Substance: RAMIPRIL
     Indication: Hypertension
     Dosage: 5 MG, QD
     Route: 065
  7. ROSUVASTATIN [Suspect]
     Active Substance: ROSUVASTATIN\ROSUVASTATIN CALCIUM
     Indication: Hypercholesterolaemia
     Dosage: 20 MG, QD
     Route: 065
  8. VITAMIN D3 [Suspect]
     Active Substance: CHOLECALCIFEROL
     Indication: Vitamin supplementation
     Dosage: 4000 IU, QD
     Route: 065

REACTIONS (5)
  - Syncope [Recovering/Resolving]
  - Blood pressure inadequately controlled [Unknown]
  - Orthostatic hypotension [Recovering/Resolving]
  - Fall [Recovering/Resolving]
  - Dizziness [Recovering/Resolving]
